FAERS Safety Report 18957989 (Version 4)
Quarter: 2025Q3

REPORT INFORMATION
  Report Type: Spontaneous
  Country: US (occurrence: US)
  Receive Date: 20210302
  Receipt Date: 20250922
  Transmission Date: 20251021
  Serious: Yes (Other)
  Sender: PFIZER
  Company Number: US-PFIZER INC-2021171696

PATIENT
  Age: 72 Year
  Sex: Female
  Weight: 88.889 kg

DRUGS (2)
  1. PREMARIN [Suspect]
     Active Substance: ESTROGENS, CONJUGATED
     Dosage: 0.3 MG, ALTERNATE DAY (1 TABLET IN THE MORNING. EVERY OTHER DAY)
     Route: 048
  2. PREMARIN [Suspect]
     Active Substance: ESTROGENS, CONJUGATED
     Dosage: 1 TABLET BY MOUTH, IN THE MORNING, EVERY OTHER DAY.
     Route: 048

REACTIONS (2)
  - Cataract [Unknown]
  - Off label use [Unknown]
